FAERS Safety Report 14525876 (Version 1)
Quarter: 2018Q1

REPORT INFORMATION
  Report Type: Spontaneous
  Country: US (occurrence: US)
  Receive Date: 20180213
  Receipt Date: 20180213
  Transmission Date: 20180509
  Serious: Yes (Death)
  Sender: FDA-Public Use
  Company Number: US-PFIZER INC-2018061576

PATIENT
  Age: 65 Year
  Sex: Female
  Weight: 37.19 kg

DRUGS (1)
  1. IBRANCE [Suspect]
     Active Substance: PALBOCICLIB
     Indication: BREAST CANCER METASTATIC
     Dosage: 75 MG, CYCLIC (DAYS 1-21- Q28 DAYS)
     Route: 048
     Dates: start: 201705, end: 201801

REACTIONS (1)
  - Death [Fatal]
